FAERS Safety Report 21223524 (Version 3)
Quarter: 2022Q3

REPORT INFORMATION
  Report Type: Report from Study
  Country: US (occurrence: US)
  Receive Date: 20220817
  Receipt Date: 20220914
  Transmission Date: 20221027
  Serious: Yes (Hospitalization)
  Sender: FDA-Public Use
  Company Number: US-JNJFOC-20220827787

PATIENT
  Age: 25 Year
  Sex: Male
  Weight: 81.720 kg

DRUGS (2)
  1. INFLIXIMAB [Suspect]
     Active Substance: INFLIXIMAB
     Indication: Inflammatory bowel disease
     Route: 041
     Dates: start: 20100913, end: 20130108
  2. ENTYVIO [Concomitant]
     Active Substance: VEDOLIZUMAB

REACTIONS (2)
  - Pneumonia fungal [Recovered/Resolved with Sequelae]
  - Fungal sepsis [Recovered/Resolved with Sequelae]

NARRATIVE: CASE EVENT DATE: 20220520
